FAERS Safety Report 25210672 (Version 1)
Quarter: 2025Q2

REPORT INFORMATION
  Report Type: Spontaneous
  Country: GB (occurrence: GB)
  Receive Date: 20250417
  Receipt Date: 20250417
  Transmission Date: 20250717
  Serious: Yes (Other)
  Sender: ELI LILLY AND CO
  Company Number: None

PATIENT
  Sex: Male

DRUGS (1)
  1. MOUNJARO [Suspect]
     Active Substance: TIRZEPATIDE
     Indication: Weight control
     Route: 065

REACTIONS (6)
  - Hypoglycaemia [Recovered/Resolved]
  - Rash [Unknown]
  - Agitation [Unknown]
  - Pyrexia [Unknown]
  - Heart rate increased [Unknown]
  - Bowel movement irregularity [Unknown]
